FAERS Safety Report 4879230-0 (Version None)
Quarter: 2006Q1

REPORT INFORMATION
  Report Type: 
  Country: None (occurrence: None)
  Receive Date: 20060112
  Receipt Date: 20051220
  Transmission Date: 20060701
  Serious: Yes (Hospitalization)
  Sender: FDA-Public Use
  Company Number: GB-ABBOTT-05P-167-0320419-00

PATIENT
  Sex: Female
  Weight: 51.5 kg

DRUGS (4)
  1. KALETRA [Suspect]
     Indication: DRUG USE FOR UNKNOWN INDICATION
     Route: 048
     Dates: start: 20050805, end: 20050809
  2. TRUVADA [Suspect]
     Indication: HIV INFECTION
     Route: 048
     Dates: start: 20050805, end: 20050809
  3. BACTRIM [Suspect]
     Indication: PNEUMOCYSTIS JIROVECI PNEUMONIA
     Route: 048
     Dates: start: 20050727, end: 20050809
  4. SULFADIAZINE [Concomitant]
     Indication: TOXOPLASMOSIS

REACTIONS (1)
  - HEPATIC FAILURE [None]
